FAERS Safety Report 21611380 (Version 2)
Quarter: 2022Q4

REPORT INFORMATION
  Report Type: Spontaneous
  Country: CA (occurrence: CA)
  Receive Date: 20221117
  Receipt Date: 20221202
  Transmission Date: 20230113
  Serious: Yes (Life-Threatening, Hospitalization)
  Sender: FDA-Public Use
  Company Number: CA-TEVA-2022-CA-2825325

PATIENT
  Age: 15 Year
  Sex: Female

DRUGS (13)
  1. AMLODIPINE [Suspect]
     Active Substance: AMLODIPINE BESYLATE
     Indication: Intentional overdose
     Route: 065
  2. CANDESARTAN [Suspect]
     Active Substance: CANDESARTAN
     Indication: Intentional overdose
     Route: 065
  3. HYDROCHLOROTHIAZIDE [Suspect]
     Active Substance: HYDROCHLOROTHIAZIDE
     Indication: Intentional overdose
     Route: 065
  4. FLUOXETINE [Suspect]
     Active Substance: FLUOXETINE HYDROCHLORIDE
     Indication: Intentional overdose
     Route: 065
  5. MIRTAZAPINE [Suspect]
     Active Substance: MIRTAZAPINE
     Indication: Intentional overdose
     Route: 065
  6. LANSOPRAZOLE [Suspect]
     Active Substance: LANSOPRAZOLE
     Indication: Intentional overdose
     Route: 065
  7. LORAZEPAM [Suspect]
     Active Substance: LORAZEPAM
     Indication: Intentional overdose
     Route: 065
  8. INSULIN NOS [Suspect]
     Active Substance: INSULIN NOS
     Indication: Drug toxicity prophylaxis
     Dosage: 1-2 UNITS/KG/H
     Route: 065
  9. EPINEPHRINE [Concomitant]
     Active Substance: EPINEPHRINE
     Indication: Hypotension
     Route: 050
  10. NOREPINEPHRINE [Concomitant]
     Active Substance: NOREPINEPHRINE
     Indication: Hypotension
     Route: 050
  11. VASOPRESSIN [Concomitant]
     Active Substance: VASOPRESSIN
     Indication: Hypotension
     Route: 050
  12. NITRIC OXIDE [Concomitant]
     Active Substance: NITRIC OXIDE
     Indication: Acute respiratory distress syndrome
     Route: 055
  13. DEXTROSE [Concomitant]
     Active Substance: DEXTROSE
     Indication: Supplementation therapy
     Route: 065

REACTIONS (7)
  - Hypotension [Unknown]
  - Acute respiratory distress syndrome [Recovering/Resolving]
  - Hypoxia [Unknown]
  - Intentional overdose [Unknown]
  - Toxicity to various agents [Unknown]
  - Vitamin B1 decreased [Unknown]
  - Lactic acidosis [Recovered/Resolved]
